FAERS Safety Report 25355476 (Version 1)
Quarter: 2025Q2

REPORT INFORMATION
  Report Type: Spontaneous
  Country: DE (occurrence: DE)
  Receive Date: 20250525
  Receipt Date: 20250525
  Transmission Date: 20250717
  Serious: Yes (Hospitalization, Other)
  Sender: SANDOZ
  Company Number: DE-AMGEN-DEUNI2018031516

PATIENT
  Age: 68 Year
  Sex: Female
  Weight: 58 kg

DRUGS (12)
  1. CARFILZOMIB [Suspect]
     Active Substance: CARFILZOMIB
     Indication: Plasma cell myeloma
     Route: 042
     Dates: start: 20180212, end: 20180213
  2. CARFILZOMIB [Suspect]
     Active Substance: CARFILZOMIB
     Route: 042
     Dates: start: 20180219, end: 20180220
  3. CARFILZOMIB [Suspect]
     Active Substance: CARFILZOMIB
     Route: 042
     Dates: start: 20180226
  4. CARFILZOMIB [Suspect]
     Active Substance: CARFILZOMIB
     Route: 042
  5. DEXAMETHASONE [Suspect]
     Active Substance: DEXAMETHASONE
     Indication: Plasma cell myeloma
     Route: 065
     Dates: start: 20180212, end: 20180213
  6. DEXAMETHASONE [Suspect]
     Active Substance: DEXAMETHASONE
     Route: 065
     Dates: start: 20180219, end: 20180220
  7. DEXAMETHASONE [Suspect]
     Active Substance: DEXAMETHASONE
     Route: 065
     Dates: start: 20180226
  8. LENALIDOMIDE [Suspect]
     Active Substance: LENALIDOMIDE
     Indication: Plasma cell myeloma
     Route: 065
     Dates: start: 20180212, end: 20180618
  9. Aciclovir ratiopharm [Concomitant]
     Indication: Prophylaxis
     Dosage: 400 MILLIGRAM, TID
     Route: 065
     Dates: start: 20180212, end: 20180917
  10. ENOXAPARIN SODIUM [Concomitant]
     Active Substance: ENOXAPARIN SODIUM
     Indication: Prophylaxis
     Dosage: 40 MILLIGRAM, QD
     Route: 065
     Dates: start: 20180212, end: 20180522
  11. Duo [Concomitant]
     Indication: Prophylaxis
     Route: 065
  12. Praxis [Concomitant]
     Indication: Prophylaxis
     Route: 065

REACTIONS (3)
  - Leukopenia [Not Recovered/Not Resolved]
  - Anaemia [Recovering/Resolving]
  - Intentional product misuse [Unknown]

NARRATIVE: CASE EVENT DATE: 20180226
